FAERS Safety Report 19994149 (Version 1)
Quarter: 2021Q4

REPORT INFORMATION
  Report Type: Spontaneous
  Country: US (occurrence: US)
  Receive Date: 20211022
  Receipt Date: 20211022
  Transmission Date: 20220303
  Serious: No
  Sender: FDA-Public Use
  Company Number: None

PATIENT
  Age: 72 Year
  Sex: Female
  Weight: 46.27 kg

DRUGS (5)
  1. LAMISIL [Suspect]
     Active Substance: TERBINAFINE HYDROCHLORIDE
     Indication: Tinea pedis
     Dosage: ?          OTHER FREQUENCY:BETWEEN TOES TID;
     Route: 058
     Dates: start: 20210812, end: 20210826
  2. ROSUVASTATIN [Concomitant]
     Active Substance: ROSUVASTATIN
  3. CALCIUM [Concomitant]
     Active Substance: CALCIUM
  4. VITAMIN C [Concomitant]
     Active Substance: ASCORBIC ACID
  5. VITAMINS [Concomitant]
     Active Substance: VITAMINS

REACTIONS (6)
  - Application site reaction [None]
  - Lip blister [None]
  - Skin texture abnormal [None]
  - Limb discomfort [None]
  - Lip dry [None]
  - Lip swelling [None]

NARRATIVE: CASE EVENT DATE: 20210820
